FAERS Safety Report 6442053-5 (Version None)
Quarter: 2009Q4

REPORT INFORMATION
  Report Type: 
  Country: None (occurrence: None)
  Receive Date: 20091116
  Receipt Date: 20091109
  Transmission Date: 20100525
  Serious: Yes (Hospitalization)
  Sender: FDA-Public Use
  Company Number: US-GENENTECH-265382

PATIENT
  Sex: Female
  Weight: 155 kg

DRUGS (13)
  1. XOLAIR [Suspect]
     Indication: ASTHMA
     Dosage: 300 MG, Q2W/X3
     Route: 058
     Dates: start: 20071101
  2. XOLAIR [Suspect]
     Indication: DRUG DEPENDENCE
  3. ALLOPURINOL [Concomitant]
     Indication: DRUG USE FOR UNKNOWN INDICATION
  4. STARLIX [Concomitant]
     Indication: DRUG USE FOR UNKNOWN INDICATION
  5. PAROXETINE HCL [Concomitant]
     Indication: DRUG USE FOR UNKNOWN INDICATION
  6. OMEPRAZOLE [Concomitant]
     Indication: DRUG USE FOR UNKNOWN INDICATION
  7. GUAIFENESIN [Concomitant]
     Indication: DRUG USE FOR UNKNOWN INDICATION
  8. LIPITOR [Concomitant]
     Indication: DRUG USE FOR UNKNOWN INDICATION
  9. AMITRIPTYLINE HCL [Concomitant]
     Indication: DRUG USE FOR UNKNOWN INDICATION
  10. SPIRONOLACTONE [Concomitant]
     Indication: DRUG USE FOR UNKNOWN INDICATION
  11. LORAZEPAM [Concomitant]
     Indication: DRUG USE FOR UNKNOWN INDICATION
  12. ASPIRIN [Concomitant]
  13. PREDNISONE [Concomitant]
     Indication: DRUG USE FOR UNKNOWN INDICATION

REACTIONS (4)
  - ANAEMIA [None]
  - LEUKOCYTOSIS [None]
  - LUNG DISORDER [None]
  - MALIGNANT NEOPLASM PROGRESSION [None]
